FAERS Safety Report 16082278 (Version 2)
Quarter: 2023Q2

REPORT INFORMATION
  Report Type: Report from Study
  Country: US (occurrence: US)
  Receive Date: 20190318
  Receipt Date: 20230515
  Transmission Date: 20230721
  Serious: No
  Sender: FDA-Public Use
  Company Number: PHEH2019US011623

PATIENT
  Sex: Male

DRUGS (2)
  1. COSENTYX [Suspect]
     Active Substance: SECUKINUMAB
     Indication: Psoriasis
     Dosage: 150 MG, UNK
     Route: 065
     Dates: start: 20150701, end: 20170202
  2. COSENTYX [Suspect]
     Active Substance: SECUKINUMAB
     Dosage: 300 MG, Q4W
     Route: 065
     Dates: start: 20181008, end: 20181208

REACTIONS (2)
  - Stenosis [Unknown]
  - Radiculopathy [Unknown]

NARRATIVE: CASE EVENT DATE: 20180801
